FAERS Safety Report 10129871 (Version 1)
Quarter: 2014Q2

REPORT INFORMATION
  Report Type: Spontaneous
  Country: FR (occurrence: None)
  Receive Date: 20140424
  Receipt Date: 20140424
  Transmission Date: 20141212
  Serious: Yes (Other)
  Sender: FDA-Public Use
  Company Number: 7284113

PATIENT
  Age: 43 Year
  Sex: Female

DRUGS (4)
  1. LEVOTHYROX (LEVOTHYROXINE SODIUM) (LEVOTHYROXINE SODIUM) [Suspect]
     Indication: PRODUCT USED FOR UNKNOWN INDICATION
  2. CYNOMEL (LIOTHYRONINE SODIUM) (TABLET) (LIOTHYRONINE SODIUM) [Concomitant]
  3. CERIS (TROSPIUM CHLORIDE) (TROSPIUM CHLORIDE) [Concomitant]
  4. COLPRONE (MEDROGESTONE) (MEDROGESTONE) [Concomitant]

REACTIONS (1)
  - Abdominal pain [None]
